FAERS Safety Report 17194597 (Version 1)
Quarter: 2019Q4

REPORT INFORMATION
  Report Type: Spontaneous
  Country: US (occurrence: US)
  Receive Date: 20191224
  Receipt Date: 20191224
  Transmission Date: 20200122
  Serious: No
  Sender: FDA-Public Use
  Company Number: US-BEH-2019110614

PATIENT
  Sex: Female

DRUGS (1)
  1. HIZENTRA [Suspect]
     Active Substance: HUMAN IMMUNOGLOBULIN G
     Indication: RHEUMATOID ARTHRITIS
     Dosage: 12 GRAM, QW
     Route: 058
     Dates: start: 20190327

REACTIONS (4)
  - Product use in unapproved indication [Unknown]
  - Dyspnoea [Unknown]
  - Asthma [Unknown]
  - No adverse event [Unknown]
